FAERS Safety Report 8954251 (Version 1)
Quarter: 2012Q4

REPORT INFORMATION
  Report Type: 
  Country: BR (occurrence: BR)
  Receive Date: 20121207
  Receipt Date: 20121207
  Transmission Date: 20130627
  Serious: Yes (Hospitalization)
  Sender: FDA-Public Use
  Company Number: PHHY2012BR112720

PATIENT
  Age: 34 Year
  Sex: Male

DRUGS (3)
  1. RITALINA [Suspect]
     Dosage: 2 UNK, daily
     Route: 048
     Dates: start: 2001
  2. ABILIFY [Suspect]
     Indication: SCHIZOPHRENIA SIMPLE
     Dosage: UNK
     Dates: start: 2001
  3. RIVOTRIL [Suspect]
     Indication: SCHIZOPHRENIA SIMPLE
     Dosage: UNK
     Dates: start: 2001

REACTIONS (2)
  - Borderline personality disorder [Recovered/Resolved]
  - Schizophrenia simple [Recovered/Resolved]
